FAERS Safety Report 8244838-1 (Version None)
Quarter: 2012Q1

REPORT INFORMATION
  Report Type: 
  Country: None (occurrence: None)
  Receive Date: 20120329
  Receipt Date: 20110606
  Transmission Date: 20120608
  Serious: No
  Sender: FDA-Public Use
  Company Number: US-MYLANLABS-2011S1011637

PATIENT
  Age: 61 Year
  Sex: Female

DRUGS (6)
  1. VALIUM [Concomitant]
  2. PERCOCET [Concomitant]
  3. NEURONTIN [Concomitant]
  4. FENTANYL-100 [Suspect]
     Indication: BONE NEOPLASM MALIGNANT
     Dosage: Q48H
     Route: 062
     Dates: start: 20100101
  5. FENTANYL-100 [Suspect]
     Indication: PAIN
     Dosage: Q48H
     Route: 062
     Dates: start: 20100101
  6. DRONABINOL [Concomitant]

REACTIONS (2)
  - DRUG WITHDRAWAL SYNDROME [None]
  - PAIN [None]
